FAERS Safety Report 4340579-1 (Version None)
Quarter: 2004Q2

REPORT INFORMATION
  Report Type: 
  Country: None (occurrence: None)
  Receive Date: 20040414
  Receipt Date: 20040329
  Transmission Date: 20050107
  Serious: Yes (Hospitalization)
  Sender: FDA-Public Use
  Company Number: 2004-BP-02458RO

PATIENT
  Age: 79 Year
  Sex: Female

DRUGS (4)
  1. LEUCOVORIN CALCIUM [Suspect]
     Indication: COLORECTAL CANCER
     Dosage: 90 MG (NR), PO
     Route: 048
     Dates: start: 20040206, end: 20040220
  2. UFT [Suspect]
     Indication: COLORECTAL CANCER
     Dosage: 500 MG (500 MG), PO
     Route: 048
     Dates: start: 20040206, end: 20040220
  3. GLIBENCLAMIDE + METFORMIN (GLYBURIDE + METFORMIN HCL) (GLIBOMET) [Concomitant]
  4. AMLODIPINE [Concomitant]

REACTIONS (2)
  - ANGINA PECTORIS [None]
  - BLOOD LACTATE DEHYDROGENASE INCREASED [None]
